FAERS Safety Report 4317108-1 (Version None)
Quarter: 2004Q1

REPORT INFORMATION
  Report Type: 
  Country: None (occurrence: None)
  Receive Date: 20040312
  Receipt Date: 20040302
  Transmission Date: 20041129
  Serious: Yes (Life-Threatening, Hospitalization)
  Sender: FDA-Public Use
  Company Number: 2004201992NO

PATIENT
  Sex: Female

DRUGS (3)
  1. CELEBREX [Suspect]
     Indication: PAIN
     Dosage: QD, ORAL
     Route: 048
     Dates: start: 20040216, end: 20040216
  2. NATRILINK [Concomitant]
  3. GLUCOSAMINE [Concomitant]

REACTIONS (6)
  - ANGIONEUROTIC OEDEMA [None]
  - DYSPNOEA [None]
  - EXANTHEM [None]
  - HYPERSENSITIVITY [None]
  - HYPOTENSION [None]
  - TACHYPNOEA [None]
